FAERS Safety Report 5416486-X (Version None)
Quarter: 2007Q3

REPORT INFORMATION
  Report Type: 
  Country: None (occurrence: None)
  Receive Date: 20070814
  Receipt Date: 20070801
  Transmission Date: 20080115
  Serious: Yes (Other)
  Sender: FDA-Public Use
  Company Number: CERZ-11784

PATIENT
  Age: 17 Year
  Sex: Male
  Weight: 63 kg

DRUGS (7)
  1. CEREZYME [Suspect]
     Indication: GAUCHER'S DISEASE
     Dosage: 44 U/KG Q2WKS IV
     Route: 042
     Dates: start: 20070125
  2. CEREZYME [Suspect]
     Indication: GAUCHER'S DISEASE
     Dosage: 48 U/KG Q2WKS IV
     Route: 042
     Dates: start: 20060124
  3. CEREZYME [Suspect]
     Indication: GAUCHER'S DISEASE
     Dosage: 81 U/KG Q2WKS IV
     Route: 042
     Dates: start: 20040101
  4. CEREZYME [Suspect]
     Indication: GAUCHER'S DISEASE
     Dosage: 100 U/KG Q2WKS IV
     Route: 042
     Dates: start: 20030101
  5. CEREZYME [Suspect]
     Indication: GAUCHER'S DISEASE
     Dosage: 90 U/KG Q2WKS IV
     Route: 042
     Dates: start: 20020101
  6. CEREZYME [Suspect]
     Indication: GAUCHER'S DISEASE
     Dosage: 31 U/KG Q2WKS IV
     Route: 042
     Dates: start: 19980505
  7. ANTISEIZURE  MEDICATION [Concomitant]

REACTIONS (6)
  - DISEASE PROGRESSION [None]
  - GAUCHER'S DISEASE [None]
  - RETINAL DEPOSITS [None]
  - VISUAL ACUITY REDUCED [None]
  - VITREOUS DISORDER [None]
  - WEIGHT INCREASED [None]
